FAERS Safety Report 13117364 (Version 1)
Quarter: 2017Q1

REPORT INFORMATION
  Report Type: Spontaneous
  Country: US (occurrence: US)
  Receive Date: 20170116
  Receipt Date: 20170116
  Transmission Date: 20170428
  Serious: Yes (Other)
  Sender: FDA-Public Use
  Company Number: PHEH2017US001366

PATIENT
  Sex: Male

DRUGS (1)
  1. VOLTAREN XR [Suspect]
     Active Substance: DICLOFENAC SODIUM
     Indication: PAIN
     Dosage: 100 MG, UNK
     Route: 065

REACTIONS (5)
  - Depression [Unknown]
  - Confusional state [Unknown]
  - Rash [Unknown]
  - Throat tightness [Unknown]
  - Vertigo [Unknown]
